FAERS Safety Report 19967817 (Version 1)
Quarter: 2021Q4

REPORT INFORMATION
  Report Type: Spontaneous
  Country: DE (occurrence: DE)
  Receive Date: 20211019
  Receipt Date: 20211019
  Transmission Date: 20220303
  Serious: Yes (Other)
  Sender: FDA-Public Use
  Company Number: DE-AMGEN-DEUSP2021158445

PATIENT
  Age: 65 Year
  Sex: Male

DRUGS (1)
  1. IMLYGIC [Suspect]
     Active Substance: TALIMOGENE LAHERPAREPVEC
     Indication: Metastatic malignant melanoma
     Dosage: UNK
     Route: 065
     Dates: start: 20210702

REACTIONS (1)
  - Polymyalgia rheumatica [Unknown]

NARRATIVE: CASE EVENT DATE: 20210701
